FAERS Safety Report 7033275-3 (Version None)
Quarter: 2010Q4

REPORT INFORMATION
  Report Type: 
  Country: None (occurrence: None)
  Receive Date: 20101007
  Receipt Date: 20101001
  Transmission Date: 20110411
  Serious: Yes (Other)
  Sender: FDA-Public Use
  Company Number: A0884492A

PATIENT
  Sex: Male

DRUGS (12)
  1. ADVAIR DISKUS 100/50 [Suspect]
     Indication: ASTHMA
     Dosage: 1PUFF TWICE PER DAY
     Route: 055
     Dates: start: 20091118
  2. ALBUTEROL [Concomitant]
  3. PROTONIX [Concomitant]
  4. HYDROCHLOROTHIAZIDE [Concomitant]
  5. VIAGRA [Concomitant]
  6. DILTIAZEM [Concomitant]
  7. NIASPAN [Concomitant]
  8. RAMIPRIL [Concomitant]
  9. FENOFIBRATE [Concomitant]
  10. PLAVIX [Concomitant]
  11. METOPROLOL TARTRATE [Concomitant]
  12. RHINOCORT [Concomitant]

REACTIONS (2)
  - ASTHMA [None]
  - PRODUCT QUALITY ISSUE [None]
